FAERS Safety Report 6610277-X (Version None)
Quarter: 2010Q1

REPORT INFORMATION
  Report Type: 
  Country: None (occurrence: None)
  Receive Date: 20100216
  Receipt Date: 20090910
  Transmission Date: 20100710
  Serious: Yes (Other)
  Sender: FDA-Public Use
  Company Number: MC200900357

PATIENT
  Age: 73 Year
  Sex: Female

DRUGS (6)
  1. ANGIOMAX [Suspect]
     Indication: PERCUTANEOUS CORONARY INTERVENTION
     Dosage: 0.75 MG/KG, BOLUS, INTRAVENOUS : 1.75 MG/KG, HR, INTRAVENOUS
     Route: 040
     Dates: start: 20090910, end: 20090910
  2. ANGIOMAX [Suspect]
     Indication: PERCUTANEOUS CORONARY INTERVENTION
     Dosage: 0.75 MG/KG, BOLUS, INTRAVENOUS : 1.75 MG/KG, HR, INTRAVENOUS
     Route: 040
     Dates: start: 20090910, end: 20090910
  3. PLAVIX [Suspect]
     Dosage: 600 MG, ORAL
     Route: 048
  4. BENADRYL [Suspect]
     Indication: PREMEDICATION
     Dosage: 50 MG, SINGLE, INTRAVENOUS
     Route: 042
  5. PEPCID [Suspect]
     Indication: PREMEDICATION
     Dosage: 20 MG, SINGLE, INTRAVENOUS
     Route: 042
  6. METHYLPREDNISOLONE [Suspect]
     Indication: PREMEDICATION
     Dosage: 125 MG, SINGLE, INTRAVENOUS
     Route: 042

REACTIONS (4)
  - BLOOD PRESSURE INCREASED [None]
  - HAEMORRHAGE INTRACRANIAL [None]
  - HEADACHE [None]
  - UNRESPONSIVE TO STIMULI [None]
